FAERS Safety Report 21111707 (Version 2)
Quarter: 2022Q3

REPORT INFORMATION
  Report Type: Spontaneous
  Country: US (occurrence: US)
  Receive Date: 20220721
  Receipt Date: 20220819
  Transmission Date: 20221027
  Serious: Yes (Death, Other)
  Sender: FDA-Public Use
  Company Number: US-GLAXOSMITHKLINE-US2022108192

PATIENT

DRUGS (2)
  1. TRELEGY ELLIPTA [Suspect]
     Active Substance: FLUTICASONE FUROATE\UMECLIDINIUM BROMIDE\VILANTEROL TRIFENATATE
     Indication: Chronic obstructive pulmonary disease
     Dosage: UNK, 100/62.5/25MCG INH 30
     Dates: start: 201809, end: 202207
  2. ASPIRIN [Suspect]
     Active Substance: ASPIRIN
     Indication: Unknown schedule of product administration
     Dosage: UNK

REACTIONS (2)
  - Respiratory failure [Fatal]
  - Drug ineffective [Unknown]
